FAERS Safety Report 22594455 (Version 2)
Quarter: 2023Q2

REPORT INFORMATION
  Report Type: Report from Study
  Country: US (occurrence: US)
  Receive Date: 20230613
  Receipt Date: 20230619
  Transmission Date: 20230722
  Serious: Yes (Hospitalization, Other)
  Sender: FDA-Public Use
  Company Number: US-SERVIER-S23005954

PATIENT

DRUGS (10)
  1. DAUNORUBICIN [Concomitant]
     Active Substance: DAUNORUBICIN
     Indication: B-cell type acute leukaemia
     Dosage: 50 MG, OTHER
     Route: 042
     Dates: start: 20230517, end: 20230517
  2. VINCRISTINE [Concomitant]
     Active Substance: VINCRISTINE
     Indication: B-cell type acute leukaemia
     Dosage: 2 MG, OTHER
     Route: 042
     Dates: start: 20230517, end: 20230517
  3. CYTARABINE [Concomitant]
     Active Substance: CYTARABINE
     Indication: B-cell type acute leukaemia
     Dosage: 70 MG, OTHER
     Route: 037
     Dates: start: 20230517, end: 20230517
  4. DEXAMETHASONE [Concomitant]
     Active Substance: DEXAMETHASONE
     Indication: B-cell type acute leukaemia
     Dosage: 10 MG, BID
     Route: 048
     Dates: start: 20230517, end: 20230523
  5. NYSTATIN [Concomitant]
     Active Substance: NYSTATIN
     Indication: Fungal skin infection
     Dosage: 100000 DF, QD
     Route: 003
     Dates: start: 20230501
  6. PROTONIX [Concomitant]
     Active Substance: PANTOPRAZOLE SODIUM
     Indication: Gastrooesophageal reflux disease
     Dosage: 40 MG, QD
     Route: 048
     Dates: start: 20230511
  7. ALLOPURINOL [Concomitant]
     Active Substance: ALLOPURINOL
     Indication: Hyperuricaemia
     Dosage: 300 MG, QD
     Route: 048
     Dates: start: 20230511
  8. ALLOPURINOL [Concomitant]
     Active Substance: ALLOPURINOL
     Indication: Prophylaxis
  9. ONDANSETRON [Concomitant]
     Active Substance: ONDANSETRON
     Indication: Chemotherapy side effect prophylaxis
     Dosage: 8 MG, OTHER
     Route: 051
     Dates: start: 20230517
  10. INSULIN ASPART [Concomitant]
     Active Substance: INSULIN ASPART
     Indication: Hyperglycaemia
     Dosage: 6 [IU], TID
     Route: 062
     Dates: start: 20230521, end: 20230607

REACTIONS (4)
  - Prothrombin time prolonged [Not Recovered/Not Resolved]
  - Hypofibrinogenaemia [Recovered/Resolved]
  - Haemorrhage intracranial [Not Recovered/Not Resolved]
  - Superior sagittal sinus thrombosis [Not Recovered/Not Resolved]

NARRATIVE: CASE EVENT DATE: 20230523
